FAERS Safety Report 8797071 (Version 1)
Quarter: 2012Q4

REPORT INFORMATION
  Report Type: Report from Study
  Country: HU (occurrence: HU)
  Receive Date: 20120919
  Receipt Date: 20120919
  Transmission Date: 20130627
  Serious: Yes (Death, Other)
  Sender: FDA-Public Use
  Company Number: HU-ROCHE-1122754

PATIENT
  Sex: Male

DRUGS (3)
  1. XELODA [Suspect]
     Indication: OESOPHAGEAL CARCINOMA
     Route: 048
     Dates: start: 20100316, end: 201004
  2. XELODA [Suspect]
     Indication: METASTASES TO LIVER
  3. XELODA [Suspect]
     Indication: METASTASES TO LUNG

REACTIONS (2)
  - Jaundice [Unknown]
  - Death [Fatal]
